FAERS Safety Report 6353178-7 (Version None)
Quarter: 2009Q3

REPORT INFORMATION
  Report Type: 
  Country: None (occurrence: None)
  Receive Date: 20090912
  Receipt Date: 20090622
  Transmission Date: 20100115
  Serious: No
  Sender: FDA-Public Use
  Company Number: US-ABBOTT-08P-163-0454745-00

PATIENT
  Sex: Female
  Weight: 97 kg

DRUGS (10)
  1. HUMIRA [Suspect]
     Indication: BEHCET'S SYNDROME
     Route: 058
     Dates: start: 20080101
  2. HUMIRA [Suspect]
     Route: 058
     Dates: start: 20071201, end: 20080101
  3. ERGOCALCIFEROL [Concomitant]
     Indication: VITAMIN SUPPLEMENTATION
     Route: 048
     Dates: start: 20070301
  4. GABAPENTIN [Concomitant]
     Indication: PAIN
     Dosage: AT NIGHT UP TO 100/300 MG IF NEEDED
     Route: 048
  5. TRIAMCINOLONE [Concomitant]
     Indication: ULCER
     Route: 061
  6. VICODIN [Concomitant]
     Indication: PAIN
     Route: 048
  7. COLCHICINE [Concomitant]
     Indication: PAIN
     Dosage: 2 S DAILY 0.6 MG IN MORNING AND 0.9 MG IN EVENING
     Route: 048
  8. FOLIC ACID [Concomitant]
     Indication: VITAMIN SUPPLEMENTATION
     Route: 048
  9. OMEPRAZOLE [Concomitant]
     Indication: GASTROOESOPHAGEAL REFLUX DISEASE
     Route: 048
  10. MUPIROCIN [Concomitant]
     Indication: ULCER
     Dosage: APPLY 1 TO 2 TIMES DAILY
     Route: 048

REACTIONS (3)
  - BEHCET'S SYNDROME [None]
  - HEPATIC ENZYME ABNORMAL [None]
  - INCORRECT DOSE ADMINISTERED [None]
